FAERS Safety Report 9541416 (Version 1)
Quarter: 2013Q3

REPORT INFORMATION
  Report Type: Spontaneous
  Country: US (occurrence: None)
  Receive Date: 20130919
  Receipt Date: 20130919
  Transmission Date: 20140515
  Serious: No
  Sender: FDA-Public Use
  Company Number: None

PATIENT
  Age: 11 Year
  Sex: Male
  Weight: 35.83 kg

DRUGS (2)
  1. CONCERTA [Suspect]
     Indication: ATTENTION DEFICIT/HYPERACTIVITY DISORDER
     Dates: start: 2009, end: 2011
  2. CONCERTA [Suspect]
     Indication: AUTISM
     Dates: start: 2009, end: 2011

REACTIONS (2)
  - Abnormal behaviour [None]
  - Condition aggravated [None]
